FAERS Safety Report 23235518 (Version 4)
Quarter: 2024Q1

REPORT INFORMATION
  Report Type: Spontaneous
  Country: JP (occurrence: JP)
  Receive Date: 20231128
  Receipt Date: 20240111
  Transmission Date: 20240409
  Serious: Yes (Other)
  Sender: FDA-Public Use
  Company Number: JP-PFIZER INC-PV202300192670

PATIENT
  Age: 47 Year
  Sex: Male
  Weight: 61.5 kg

DRUGS (15)
  1. XELJANZ [Suspect]
     Active Substance: TOFACITINIB CITRATE
     Indication: Enterocolitis
     Dosage: 10 MG, 2X/DAY
     Route: 048
     Dates: start: 20230925, end: 20231024
  2. XELJANZ [Suspect]
     Active Substance: TOFACITINIB CITRATE
     Dosage: 5 MG, 2X/DAY
     Route: 048
     Dates: start: 20231025, end: 20231121
  3. PREDONINE [Concomitant]
     Active Substance: PREDNISOLONE
     Indication: Enterocolitis
     Dosage: 120 MG
     Route: 048
     Dates: start: 20230906, end: 20230927
  4. PREDONINE [Concomitant]
     Active Substance: PREDNISOLONE
     Dosage: 60 MG
     Route: 048
     Dates: start: 20230928, end: 20231002
  5. PREDONINE [Concomitant]
     Active Substance: PREDNISOLONE
     Dosage: 50 MG
     Route: 048
     Dates: start: 20231003, end: 20231006
  6. PREDONINE [Concomitant]
     Active Substance: PREDNISOLONE
     Dosage: 40 MG
     Route: 048
     Dates: start: 20231007, end: 20231010
  7. PREDONINE [Concomitant]
     Active Substance: PREDNISOLONE
     Dosage: 30 MG
     Route: 048
     Dates: start: 20231011, end: 20231017
  8. PREDONINE [Concomitant]
     Active Substance: PREDNISOLONE
     Dosage: 20 MG
     Route: 048
     Dates: start: 20231018, end: 20231021
  9. PREDONINE [Concomitant]
     Active Substance: PREDNISOLONE
     Dosage: 15 MG
     Route: 048
     Dates: start: 20231022, end: 20231025
  10. PREDONINE [Concomitant]
     Active Substance: PREDNISOLONE
     Dosage: 10 MG
     Route: 048
     Dates: start: 20231026, end: 20231029
  11. PREDONINE [Concomitant]
     Active Substance: PREDNISOLONE
     Dosage: 10 MG
     Route: 048
     Dates: start: 20231026, end: 20231029
  12. PREDONINE [Concomitant]
     Active Substance: PREDNISOLONE
     Dosage: 5 MG
     Route: 048
     Dates: start: 20231030, end: 20231114
  13. PREDONINE [Concomitant]
     Active Substance: PREDNISOLONE
     Dosage: 4 MG
     Route: 048
     Dates: start: 20231115, end: 20231128
  14. PREDONINE [Concomitant]
     Active Substance: PREDNISOLONE
     Dosage: 3 MG
     Route: 048
     Dates: start: 20231129, end: 20231212
  15. PREDONINE [Concomitant]
     Active Substance: PREDNISOLONE
     Dosage: 2 MG
     Route: 048
     Dates: start: 20231213

REACTIONS (2)
  - Neoplasm progression [Unknown]
  - Off label use [Unknown]

NARRATIVE: CASE EVENT DATE: 20231117
